FAERS Safety Report 7393000-3 (Version None)
Quarter: 2011Q2

REPORT INFORMATION
  Report Type: 
  Country: None (occurrence: None)
  Receive Date: 20110404
  Receipt Date: 20110322
  Transmission Date: 20111010
  Serious: Yes (Other)
  Sender: FDA-Public Use
  Company Number: AU-WATSON-2011-03039

PATIENT
  Age: 29 Year
  Sex: Male

DRUGS (2)
  1. DIAZEPAM [Suspect]
     Indication: INTENTIONAL OVERDOSE
     Dosage: 75 MG, SINGLE
     Route: 048
  2. DIVALPROEX SODIUM [Suspect]
     Indication: INTENTIONAL OVERDOSE
     Dosage: 4 G, SINGLE
     Route: 048

REACTIONS (5)
  - CEREBRAL INFARCTION [None]
  - OVERDOSE [None]
  - COMA [None]
  - ENCEPHALOPATHY [None]
  - BRAIN OEDEMA [None]
